FAERS Safety Report 7930771-9 (Version None)
Quarter: 2011Q4

REPORT INFORMATION
  Report Type: 
  Country: None (occurrence: None)
  Receive Date: 20111121
  Receipt Date: 20111110
  Transmission Date: 20120403
  Serious: Yes (Hospitalization, Other)
  Sender: FDA-Public Use
  Company Number: US-GLAXOSMITHKLINE-A0953469A

PATIENT
  Age: 35 Year
  Sex: Female

DRUGS (2)
  1. CORTICOSTEROIDS [Concomitant]
     Indication: IDIOPATHIC THROMBOCYTOPENIC PURPURA
     Dates: start: 20090806
  2. PROMACTA [Suspect]
     Indication: IDIOPATHIC THROMBOCYTOPENIC PURPURA
     Dosage: 50MG PER DAY
     Route: 048
     Dates: end: 20110624

REACTIONS (10)
  - COAGULOPATHY [None]
  - HYPONATRAEMIA [None]
  - URINARY TRACT INFECTION [None]
  - HEPATIC FUNCTION ABNORMAL [None]
  - HAEMATOLOGICAL MALIGNANCY [None]
  - THROMBOCYTOPENIA [None]
  - RENAL FAILURE ACUTE [None]
  - HYPERSENSITIVITY [None]
  - LEUKOCYTOSIS [None]
  - SEPSIS [None]
